FAERS Safety Report 8296329-X (Version None)
Quarter: 2012Q1

REPORT INFORMATION
  Report Type: 
  Country: None (occurrence: None)
  Receive Date: 20120322
  Receipt Date: 20120209
  Transmission Date: 20120608
  Serious: Yes (Hospitalization)
  Sender: FDA-Public Use
  Company Number: UTC-014584

PATIENT
  Age: 21 Year
  Sex: Female
  Weight: 42.7 kg

DRUGS (7)
  1. TYVASO [Suspect]
     Indication: COR PULMONALE CHRONIC
     Dosage: 216 MCG (54 MCG, 4 IN 1 D), INHALATION
     Route: 055
     Dates: start: 20110420
  2. ADCIRCA [Concomitant]
  3. REVATIO [Concomitant]
  4. OXYGEN (OXYGEN) [Concomitant]
  5. TRACLEER [Concomitant]
  6. DIURETICS (DIURETICS) [Concomitant]
  7. COUMADIN [Concomitant]

REACTIONS (3)
  - PLEURAL EFFUSION [None]
  - PULMONARY HYPERTENSION [None]
  - PNEUMONIA [None]
